FAERS Safety Report 22065998 (Version 1)
Quarter: 2023Q1

REPORT INFORMATION
  Report Type: Report from Study
  Country: US (occurrence: US)
  Receive Date: 20230306
  Receipt Date: 20230306
  Transmission Date: 20230418
  Serious: Yes (Other)
  Sender: FDA-Public Use
  Company Number: US-ABBVIE-4328031

PATIENT
  Age: 53 Year

DRUGS (1)
  1. HUMIRA [Suspect]
     Active Substance: ADALIMUMAB
     Indication: Psoriasis
     Dosage: CITRATE FREE
     Route: 058
     Dates: start: 20210130

REACTIONS (4)
  - Pelvic fracture [Recovering/Resolving]
  - Rib fracture [Unknown]
  - Fracture [Unknown]
  - Road traffic accident [Unknown]

NARRATIVE: CASE EVENT DATE: 20220801
